FAERS Safety Report 14452815 (Version 6)
Quarter: 2019Q3

REPORT INFORMATION
  Report Type: Spontaneous
  Country: US (occurrence: US)
  Receive Date: 20180129
  Receipt Date: 20190930
  Transmission Date: 20191004
  Serious: No
  Sender: FDA-Public Use
  Company Number: US-PFIZER INC-2018035449

PATIENT
  Age: 66 Year
  Sex: Female

DRUGS (3)
  1. WARFARIN [Concomitant]
     Active Substance: WARFARIN
     Dosage: 6 MG, ALTERNATE DAY (EVERY OTHER DAY)
  2. IBRANCE [Suspect]
     Active Substance: PALBOCICLIB
     Indication: BREAST CANCER FEMALE
     Dosage: 125 MG, CYCLIC(21 DAYS ON AND 7 DAYS OFF)
  3. WARFARIN [Concomitant]
     Active Substance: WARFARIN
     Dosage: 5 MG, UNK (5MG ON MONDAY, WEDNESDAY AND FRIDAY)

REACTIONS (6)
  - Memory impairment [Unknown]
  - Fall [Not Recovered/Not Resolved]
  - Abdominal distension [Unknown]
  - Confusional state [Unknown]
  - Head injury [Unknown]
  - Bone lesion [Unknown]

NARRATIVE: CASE EVENT DATE: 20190920
